FAERS Safety Report 12682084 (Version 1)
Quarter: 2016Q3

REPORT INFORMATION
  Report Type: Spontaneous
  Country: BE (occurrence: BE)
  Receive Date: 20160824
  Receipt Date: 20160824
  Transmission Date: 20161109
  Serious: Yes (Hospitalization, Other)
  Sender: FDA-Public Use
  Company Number: BE-TAKEDA-2016TUS014955

PATIENT
  Age: 77 Year
  Sex: Male

DRUGS (1)
  1. ENTYVIO [Suspect]
     Active Substance: VEDOLIZUMAB
     Indication: CROHN^S DISEASE
     Dosage: 300 MG, UNK
     Route: 042
     Dates: start: 20160314

REACTIONS (4)
  - Retinal detachment [Unknown]
  - Drug ineffective [Unknown]
  - Pulmonary embolism [Unknown]
  - Herpes zoster [Unknown]

NARRATIVE: CASE EVENT DATE: 201604
